FAERS Safety Report 25375237 (Version 2)
Quarter: 2025Q2

REPORT INFORMATION
  Report Type: Report from Study
  Country: KR (occurrence: KR)
  Receive Date: 20250529
  Receipt Date: 20250612
  Transmission Date: 20250716
  Serious: Yes (Other)
  Sender: TAKEDA
  Company Number: KR-TAKEDA-2025TUS049964

PATIENT
  Age: 69 Year
  Sex: Male
  Weight: 60.4 kg

DRUGS (21)
  1. MARIBAVIR [Suspect]
     Active Substance: MARIBAVIR
     Indication: Cytomegalovirus infection
     Dosage: 400 MILLIGRAM, BID
     Dates: start: 20250306, end: 20250325
  2. URSODIOL [Concomitant]
     Active Substance: URSODIOL
     Indication: Acute graft versus host disease in liver
     Dosage: 400 MILLIGRAM, BID
     Dates: start: 20250115, end: 20250404
  3. DIETARY SUPPLEMENT\HERBALS\MILK THISTLE [Concomitant]
     Active Substance: MILK THISTLE
     Indication: Acute graft versus host disease in liver
     Dosage: 140 MILLIGRAM, BID
     Dates: start: 20250226
  4. PANTOPRAZOLE SODIUM [Concomitant]
     Active Substance: PANTOPRAZOLE SODIUM
     Indication: Acute graft versus host disease in intestine
     Dosage: 40 MILLIGRAM, BID
     Dates: start: 20241228, end: 20250327
  5. ACETYLCYSTEINE [Concomitant]
     Active Substance: ACETYLCYSTEINE
     Indication: Pneumonia fungal
     Dosage: 600 MILLIGRAM, TID
     Dates: start: 20250125, end: 20250327
  6. ORNITHINE ASPARTATE [Concomitant]
     Active Substance: ORNITHINE ASPARTATE
     Indication: Acute graft versus host disease in liver
     Dosage: 2000 MILLIGRAM, QD
     Dates: start: 20241228, end: 20250327
  7. HUMULIN R [Concomitant]
     Active Substance: INSULIN HUMAN
     Indication: Hyperglycaemia
     Dates: start: 20241224, end: 20250327
  8. TRANEXAMIC ACID [Concomitant]
     Active Substance: TRANEXAMIC ACID
     Indication: Haematemesis
     Dosage: 2500 MILLIGRAM, QD
     Dates: start: 20250204, end: 20250316
  9. Cipol [Concomitant]
     Indication: Acute graft versus host disease in intestine
     Dosage: 40 MILLIGRAM, QD
     Dates: start: 20250218, end: 20250313
  10. Cipol [Concomitant]
     Dosage: 45 MILLIGRAM, QD
     Dates: start: 20250314, end: 20250319
  11. Cipol [Concomitant]
     Dosage: 75 MILLIGRAM, QD
     Dates: start: 20250319, end: 20250323
  12. Cipol [Concomitant]
     Dosage: 50 MILLIGRAM, BID
     Dates: start: 20250324, end: 20250328
  13. VFEND [Concomitant]
     Active Substance: VORICONAZOLE
     Indication: Pneumonia fungal
     Dosage: 266 MILLIGRAM, BID
     Dates: start: 20250116, end: 20250318
  14. VFEND [Concomitant]
     Active Substance: VORICONAZOLE
     Dosage: 200 MILLIGRAM, BID
     Dates: start: 20250319, end: 20250421
  15. Fotagel [Concomitant]
     Indication: Acute graft versus host disease in intestine
     Dosage: 20 MILLILITER, TID
     Dates: start: 20241228, end: 20250404
  16. METHYLPREDNISOLONE [Concomitant]
     Active Substance: METHYLPREDNISOLONE
     Indication: Acute graft versus host disease in liver
     Dosage: 12 MILLIGRAM, BID
     Dates: start: 20250228, end: 20250313
  17. METHYLPREDNISOLONE [Concomitant]
     Active Substance: METHYLPREDNISOLONE
     Dosage: 10 MILLIGRAM, BID
     Dates: start: 20250314, end: 20250327
  18. SULFAMETHOXAZOLE\TRIMETHOPRIM [Concomitant]
     Active Substance: SULFAMETHOXAZOLE\TRIMETHOPRIM
     Indication: Prophylaxis
     Dosage: UNK UNK, QD
     Dates: start: 20241229
  19. RUXOLITINIB [Concomitant]
     Active Substance: RUXOLITINIB
     Indication: Acute graft versus host disease in liver
     Dosage: 10 MILLIGRAM, BID
     Dates: start: 20241230, end: 20250403
  20. AMLODIPINE OROTATE [Concomitant]
     Active Substance: AMLODIPINE OROTATE
     Indication: Hypertension
     Dosage: 5 MILLIGRAM, QD
     Dates: start: 20240923
  21. Kanarb [Concomitant]
     Indication: Hypertension
     Dosage: 30 MILLIGRAM, QD
     Dates: start: 20250215, end: 20250421

REACTIONS (2)
  - Cytomegalovirus viraemia [Recovered/Resolved]
  - Pyuria [Recovered/Resolved]

NARRATIVE: CASE EVENT DATE: 20250310
